FAERS Safety Report 15708660 (Version 1)
Quarter: 2018Q4

REPORT INFORMATION
  Report Type: Spontaneous
  Country: US (occurrence: US)
  Receive Date: 20181205
  Receipt Date: 20181205
  Transmission Date: 20190205
  Serious: No
  Sender: FDA-Public Use
  Company Number: None

PATIENT

DRUGS (1)
  1. XELODA [Suspect]
     Active Substance: CAPECITABINE

REACTIONS (7)
  - Small intestinal obstruction [None]
  - Blood creatinine increased [None]
  - Abdominal distension [None]
  - Vomiting [None]
  - Bacterial infection [None]
  - Blood sodium decreased [None]
  - Hypotension [None]
